FAERS Safety Report 15549560 (Version 1)
Quarter: 2018Q4

REPORT INFORMATION
  Report Type: Spontaneous
  Country: US (occurrence: US)
  Receive Date: 20181025
  Receipt Date: 20181025
  Transmission Date: 20190205
  Serious: No
  Sender: FDA-Public Use
  Company Number: US-BAYER-2018-189987

PATIENT
  Age: 77 Year
  Sex: Male
  Weight: 88 kg

DRUGS (2)
  1. 5 FU [Concomitant]
     Active Substance: FLUOROURACIL
  2. CLARITIN [Suspect]
     Active Substance: LORATADINE
     Dosage: 1 DF, QD
     Route: 048

REACTIONS (3)
  - Product used for unknown indication [Unknown]
  - Product size issue [None]
  - Off label use [Unknown]
